FAERS Safety Report 6069095-6 (Version None)
Quarter: 2009Q1

REPORT INFORMATION
  Report Type: 
  Country: None (occurrence: None)
  Receive Date: 20090206
  Receipt Date: 20090123
  Transmission Date: 20090719
  Serious: Yes (Death)
  Sender: FDA-Public Use
  Company Number: GB-ELI_LILLY_AND_COMPANY-GB200810000883

PATIENT
  Sex: Female

DRUGS (3)
  1. FORTEO [Suspect]
     Indication: OSTEOPOROSIS
     Dosage: 20 UG, DAILY (1/D)
     Route: 058
     Dates: start: 20080501
  2. PREDNISOLONE [Concomitant]
  3. ACETAMINOPHEN [Concomitant]

REACTIONS (4)
  - CONTUSION [None]
  - JOINT SWELLING [None]
  - PNEUMONIA [None]
  - PRURITUS [None]
